FAERS Safety Report 19286986 (Version 20)
Quarter: 2022Q4

REPORT INFORMATION
  Report Type: Report from Study
  Country: AU (occurrence: AU)
  Receive Date: 20210521
  Receipt Date: 20221012
  Transmission Date: 20230113
  Serious: Yes (Hospitalization, Other)
  Sender: FDA-Public Use
  Company Number: AU-BIOGEN-2020BI00956660

PATIENT
  Sex: Female

DRUGS (2)
  1. TYSABRI [Suspect]
     Active Substance: NATALIZUMAB
     Indication: Multiple sclerosis
     Dosage: 300 MG/15 ML
     Route: 050
     Dates: start: 20210210, end: 20220606
  2. TYSABRI [Suspect]
     Active Substance: NATALIZUMAB
     Dosage: 20 MILLIGRAM/MILLILITER?300 MG/15 ML
     Route: 050
     Dates: start: 20210210

REACTIONS (46)
  - Respiratory syncytial virus infection [Recovered/Resolved]
  - Gait disturbance [Not Recovered/Not Resolved]
  - Pain in extremity [Not Recovered/Not Resolved]
  - Optic neuritis [Not Recovered/Not Resolved]
  - Emotional distress [Not Recovered/Not Resolved]
  - Dermatitis bullous [Not Recovered/Not Resolved]
  - Spinal cord compression [Not Recovered/Not Resolved]
  - Ophthalmic herpes zoster [Unknown]
  - Limb mass [Not Recovered/Not Resolved]
  - Mood swings [Not Recovered/Not Resolved]
  - Paraesthesia [Unknown]
  - Pain [Not Recovered/Not Resolved]
  - Blood pressure decreased [Unknown]
  - Limb discomfort [Not Recovered/Not Resolved]
  - Feeling hot [Not Recovered/Not Resolved]
  - Neuralgia [Not Recovered/Not Resolved]
  - Oropharyngeal pain [Recovered/Resolved]
  - Muscle spasms [Not Recovered/Not Resolved]
  - Muscular weakness [Not Recovered/Not Resolved]
  - Coordination abnormal [Not Recovered/Not Resolved]
  - Asthenia [Recovered/Resolved]
  - Central nervous system lesion [Not Recovered/Not Resolved]
  - Mobility decreased [Not Recovered/Not Resolved]
  - Fall [Recovered/Resolved]
  - Conversion disorder [Not Recovered/Not Resolved]
  - Extensor plantar response [Not Recovered/Not Resolved]
  - Hypoaesthesia [Not Recovered/Not Resolved]
  - Secondary progressive multiple sclerosis [Not Recovered/Not Resolved]
  - Dysphagia [Not Recovered/Not Resolved]
  - Urinary retention [Not Recovered/Not Resolved]
  - Dysphonia [Recovered/Resolved]
  - Cough [Recovered/Resolved]
  - Rash pruritic [Not Recovered/Not Resolved]
  - Viral infection [Not Recovered/Not Resolved]
  - Middle insomnia [Unknown]
  - Muscle spasms [Not Recovered/Not Resolved]
  - Diarrhoea [Recovered/Resolved]
  - Abdominal pain [Not Recovered/Not Resolved]
  - Gastrooesophageal reflux disease [Not Recovered/Not Resolved]
  - COVID-19 [Recovered/Resolved]
  - Diverticulitis [Recovered/Resolved]
  - Herpes zoster [Recovered/Resolved]
  - Urticaria [Recovered/Resolved]
  - Fatigue [Recovered/Resolved]
  - Headache [Recovered/Resolved]
  - Nausea [Not Recovered/Not Resolved]

NARRATIVE: CASE EVENT DATE: 20210101
